FAERS Safety Report 13164815 (Version 2)
Quarter: 2017Q1

REPORT INFORMATION
  Report Type: Spontaneous
  Country: None (occurrence: US)
  Receive Date: 20170130
  Receipt Date: 20170216
  Transmission Date: 20170428
  Serious: No
  Sender: FDA-Public Use
  Company Number: US-MATRIXX INITIATIVES, INC.-1062530

PATIENT
  Sex: Female

DRUGS (1)
  1. ZICAM NOS [Suspect]
     Active Substance: ACETAMINOPHEN\CHLORPHENIRAMINE MALEATE\DEXTROMETHORPHAN HYDROBROMIDE\PHENYLEPHRINE HYDROCHLORIDE OR ACETAMINOPHEN\DEXTROMETHORPHAN HYDROBROMIDE\DOXYLAMINE SUCCINATE\PHENYLEPHRINE HYDROCHLORIDE OR HOMEOPATHICS
     Indication: NASOPHARYNGITIS
     Route: 048
     Dates: start: 20170126, end: 20170127

REACTIONS (2)
  - Anosmia [Recovering/Resolving]
  - Ageusia [Recovered/Resolved]
